FAERS Safety Report 9618924 (Version 1)
Quarter: 2013Q4

REPORT INFORMATION
  Report Type: Spontaneous
  Country: US (occurrence: US)
  Receive Date: 20131014
  Receipt Date: 20131014
  Transmission Date: 20140711
  Serious: No
  Sender: FDA-Public Use
  Company Number: US-BAYER-2013-122862

PATIENT
  Sex: Female

DRUGS (1)
  1. CLIMARA [Suspect]
     Indication: HYSTERECTOMY
     Dosage: UNK
     Dates: start: 2011

REACTIONS (5)
  - Hot flush [None]
  - Vulvovaginal dryness [None]
  - Fatigue [None]
  - Extra dose administered [None]
  - Drug ineffective [None]
